FAERS Safety Report 6727763-4 (Version None)
Quarter: 2010Q2

REPORT INFORMATION
  Report Type: 
  Country: None (occurrence: None)
  Receive Date: 20100517
  Receipt Date: 20100506
  Transmission Date: 20101027
  Serious: Yes (Hospitalization, Other)
  Sender: FDA-Public Use
  Company Number: JP-ELI_LILLY_AND_COMPANY-JP201005001493

PATIENT
  Sex: Male
  Weight: 56.5 kg

DRUGS (1)
  1. GEMCITABINE HCL [Suspect]
     Indication: PANCREATIC CARCINOMA NON-RESECTABLE
     Dosage: 1000 MG/M2, UNK
     Route: 042
     Dates: start: 20081226, end: 20100409

REACTIONS (1)
  - HAEMOLYTIC ANAEMIA [None]
